FAERS Safety Report 21589306 (Version 1)
Quarter: 2022Q4

REPORT INFORMATION
  Report Type: Report from Study
  Country: US (occurrence: US)
  Receive Date: 20221114
  Receipt Date: 20221114
  Transmission Date: 20230113
  Serious: Yes (Other)
  Sender: FDA-Public Use
  Company Number: US-ABBVIE-4195890

PATIENT
  Age: 58 Year
  Sex: Male

DRUGS (1)
  1. HUMIRA [Suspect]
     Active Substance: ADALIMUMAB
     Indication: Psoriatic arthropathy
     Dosage: FORM STRENGTH: 40 MILLIGRAM. THERAPY START DATE WAS 13 SEP 2022
     Route: 058

REACTIONS (4)
  - Tendon operation [Unknown]
  - White blood cell count increased [Unknown]
  - Ingrowing nail [Unknown]
  - Nail infection [Unknown]

NARRATIVE: CASE EVENT DATE: 20220101
